FAERS Safety Report 22046755 (Version 1)
Quarter: 2023Q1

REPORT INFORMATION
  Report Type: Spontaneous
  Country: ES (occurrence: ES)
  Receive Date: 20230228
  Receipt Date: 20230228
  Transmission Date: 20230417
  Serious: Yes (Congenital Anomaly)
  Sender: FDA-Public Use
  Company Number: ES-BIOGEN-2023BI01189763

PATIENT

DRUGS (1)
  1. TECFIDERA [Suspect]
     Active Substance: DIMETHYL FUMARATE
     Indication: Maternal exposure timing unspecified
     Route: 050

REACTIONS (2)
  - Foetal malformation [Not Recovered/Not Resolved]
  - Foetal exposure during pregnancy [Unknown]

NARRATIVE: CASE EVENT DATE: 20230221
